FAERS Safety Report 10045679 (Version 1)
Quarter: 2014Q1

REPORT INFORMATION
  Report Type: Spontaneous
  Country: US (occurrence: None)
  Receive Date: 20140306
  Receipt Date: 20140306
  Transmission Date: 20141002
  Serious: Yes (Hospitalization)
  Sender: FDA-Public Use
  Company Number: 163-21880-13054968

PATIENT
  Age: 68 Year
  Sex: Male

DRUGS (1)
  1. REVLIMID (LENALIDOMIDE) (CAPSULES) [Suspect]
     Indication: PLASMA CELL MYELOMA
     Dosage: 10MG, 14 IN 21 D, PO
     Route: 048
     Dates: start: 201212

REACTIONS (3)
  - Hypokalaemia [None]
  - Vomiting [None]
  - Abdominal pain [None]
